FAERS Safety Report 4296749-4 (Version None)
Quarter: 2004Q1

REPORT INFORMATION
  Report Type: 
  Country: None (occurrence: None)
  Receive Date: 20040126
  Receipt Date: 20030919
  Transmission Date: 20041129
  Serious: No
  Sender: FDA-Public Use
  Company Number: USA030742545

PATIENT
  Age: 13 Year
  Sex: Male
  Weight: 40 kg

DRUGS (5)
  1. STRATTERA [Suspect]
     Indication: ATTENTION DEFICIT/HYPERACTIVITY DISORDER
     Dosage: 25 MG/DAY
     Dates: start: 20030726
  2. STRATTERA [Suspect]
     Indication: BIPOLAR DISORDER
     Dosage: 25 MG/DAY
     Dates: start: 20030726
  3. DEPAKOTE [Concomitant]
  4. ZOLOFT [Concomitant]
  5. CONCERTA [Concomitant]

REACTIONS (3)
  - ABNORMAL BEHAVIOUR [None]
  - HYPERSOMNIA [None]
  - SOMNOLENCE [None]
